FAERS Safety Report 23460058 (Version 3)
Quarter: 2024Q3

REPORT INFORMATION
  Report Type: Report from Study
  Country: FR (occurrence: None)
  Receive Date: 20240131
  Receipt Date: 20240723
  Transmission Date: 20241016
  Serious: Yes (Other)
  Sender: ASTRAZENECA
  Company Number: 2024A021498

PATIENT
  Sex: Male
  Weight: 68 kg

DRUGS (3)
  1. IMFINZI [Suspect]
     Active Substance: DURVALUMAB
     Indication: HER2 positive biliary tract cancer
     Route: 042
     Dates: start: 20231212
  2. IMFINZI [Suspect]
     Active Substance: DURVALUMAB
     Indication: HER2 positive biliary tract cancer
     Route: 042
     Dates: start: 20240108, end: 20240610
  3. GEMCITABINE-CISPLATIN [Concomitant]
     Dates: start: 20231212

REACTIONS (4)
  - Febrile bone marrow aplasia [Recovered/Resolved]
  - Thrombocytopenia [Unknown]
  - Bacteraemia [Recovered/Resolved]
  - Asthenia [Recovered/Resolved]
